FAERS Safety Report 5697425-3 (Version None)
Quarter: 2008Q2

REPORT INFORMATION
  Report Type: 
  Country: None (occurrence: None)
  Receive Date: 20080407
  Receipt Date: 20080331
  Transmission Date: 20081010
  Serious: Yes (Death, Hospitalization, Other)
  Sender: FDA-Public Use
  Company Number: PHHY2008MX04178

PATIENT
  Age: 14 Year
  Sex: Male

DRUGS (3)
  1. TEGRETOL [Suspect]
     Indication: EPILEPSY
     Dosage: 2 TABLETS PER DAY
     Route: 048
     Dates: start: 20080211
  2. TEGRETOL [Suspect]
     Dosage: 2.5 TABLETS PER DAY
     Route: 048
     Dates: start: 20080301
  3. ATEMPERATOR [Concomitant]
     Indication: EPILEPSY
     Dates: start: 20061101

REACTIONS (6)
  - BLISTER [None]
  - PNEUMONIA [None]
  - RASH [None]
  - SKIN BURNING SENSATION [None]
  - STEVENS-JOHNSON SYNDROME [None]
  - VARICELLA [None]
